FAERS Safety Report 4323496-2 (Version None)
Quarter: 2004Q1

REPORT INFORMATION
  Report Type: 
  Country: None (occurrence: None)
  Receive Date: 20040325
  Receipt Date: 20040316
  Transmission Date: 20041129
  Serious: Yes (Hospitalization)
  Sender: FDA-Public Use
  Company Number: PHBS2004IT03793

PATIENT
  Age: 59 Year
  Sex: Female

DRUGS (12)
  1. CYCLOSPORINE [Suspect]
     Indication: RENAL AND LIVER TRANSPLANT
     Dosage: 150 MG/D
  2. CYCLOSPORINE [Suspect]
     Dosage: 200 MG/D
  3. METHYLPREDNISOLONE [Concomitant]
     Dosage: 1 G INTRAOPERATIVE BOLUS
  4. METHYLPREDNISOLONE [Concomitant]
     Dosage: 200 MG - 20 MG/DAY
  5. METHYLPREDNISOLONE [Concomitant]
     Dosage: 40 MG/D
  6. PREDNISONE [Concomitant]
     Dosage: 20 MG/DAY
  7. TACROLIMUS [Suspect]
     Dosage: 3 MG/D
  8. TACROLIMUS [Suspect]
     Dosage: 1.5 MG/D
  9. TACROLIMUS [Suspect]
     Dosage: 1 MG/D
  10. TACROLIMUS [Suspect]
     Dosage: 2.5 MG/D
  11. TACROLIMUS [Suspect]
     Dosage: 4.5 MG/D
  12. TACROLIMUS [Suspect]
     Dosage: 4.0 MG/D

REACTIONS (26)
  - ANASTOMOTIC LEAK [None]
  - ANURIA [None]
  - BLOOD LACTATE DEHYDROGENASE INCREASED [None]
  - BRONCHOPULMONARY ASPERGILLOSIS [None]
  - CHOLANGITIS [None]
  - CYTOMEGALOVIRUS INFECTION [None]
  - DELIRIUM [None]
  - DISORIENTATION [None]
  - ESCHERICHIA BACTERAEMIA [None]
  - GASTROINTESTINAL HAEMORRHAGE [None]
  - HAEMOLYTIC ANAEMIA [None]
  - HAEMOLYTIC URAEMIC SYNDROME [None]
  - HYPERTENSION [None]
  - JEJUNAL PERFORATION [None]
  - LIVER TRANSPLANT REJECTION [None]
  - LYMPHOCELE [None]
  - NEUROTOXICITY [None]
  - POST PROCEDURAL COMPLICATION [None]
  - RED BLOOD CELL SCHISTOCYTES PRESENT [None]
  - RENAL IMPAIRMENT [None]
  - RENAL TUBULAR NECROSIS [None]
  - SOMNOLENCE [None]
  - STAPHYLOCOCCAL BACTERAEMIA [None]
  - STREPTOCOCCAL INFECTION [None]
  - THROMBOCYTOPENIA [None]
  - WOUND NECROSIS [None]
